FAERS Safety Report 23959966 (Version 1)
Quarter: 2024Q2

REPORT INFORMATION
  Report Type: Spontaneous
  Country: US (occurrence: US)
  Receive Date: 20240611
  Receipt Date: 20240611
  Transmission Date: 20240716
  Serious: No
  Sender: FDA-Public Use
  Company Number: US-BRISTOL-MYERS SQUIBB COMPANY-2024-092089

PATIENT
  Age: 81 Year
  Sex: Male
  Weight: 80.97 kg

DRUGS (3)
  1. SPRYCEL [Suspect]
     Active Substance: DASATINIB
     Indication: Chronic myeloid leukaemia
     Route: 048
  2. XARELTO [Concomitant]
     Active Substance: RIVAROXABAN
     Indication: Blood pressure measurement
  3. KRILL OIL [Concomitant]
     Active Substance: DIETARY SUPPLEMENT\KRILL OIL
     Indication: Glaucoma

REACTIONS (8)
  - Road traffic accident [Unknown]
  - Peripheral swelling [Unknown]
  - Skin discolouration [Unknown]
  - Acne [Unknown]
  - Fall [Recovering/Resolving]
  - Contusion [Unknown]
  - Haematoma [Unknown]
  - Pain [Unknown]

NARRATIVE: CASE EVENT DATE: 20240101
